FAERS Safety Report 15487208 (Version 1)
Quarter: 2018Q4

REPORT INFORMATION
  Report Type: Spontaneous
  Country: US (occurrence: US)
  Receive Date: 20181010
  Receipt Date: 20181010
  Transmission Date: 20190205
  Serious: Yes (Hospitalization, Other)
  Sender: FDA-Public Use
  Company Number: None

PATIENT
  Age: 10 Year
  Sex: Female
  Weight: 45 kg

DRUGS (1)
  1. MIRALAX [Suspect]
     Active Substance: POLYETHYLENE GLYCOL 3350
     Indication: CONSTIPATION
     Dosage: 1 DOSING CUP; 3 TIMES A DAY ORAL?
     Route: 048
     Dates: start: 20140101, end: 20180801

REACTIONS (6)
  - Gastrointestinal disorder [None]
  - Petit mal epilepsy [None]
  - Nausea [None]
  - Pain [None]
  - Gait inability [None]
  - Gastrooesophageal reflux disease [None]

NARRATIVE: CASE EVENT DATE: 20180515
